FAERS Safety Report 6053910-6 (Version None)
Quarter: 2009Q1

REPORT INFORMATION
  Report Type: 
  Country: None (occurrence: None)
  Receive Date: 20090123
  Receipt Date: 20090108
  Transmission Date: 20090719
  Serious: Yes (Hospitalization)
  Sender: FDA-Public Use
  Company Number: 2009S1000423

PATIENT
  Sex: Female

DRUGS (2)
  1. CITALOPRAM HYDROBROMIDE [Suspect]
     Indication: DRUG ABUSE
  2. IMIGRAN (SUMATRIPTIN) [Suspect]
     Indication: MIGRAINE

REACTIONS (2)
  - DRUG INTERACTION [None]
  - EPILEPSY [None]
